FAERS Safety Report 25075185 (Version 1)
Quarter: 2025Q1

REPORT INFORMATION
  Report Type: Spontaneous
  Country: US (occurrence: None)
  Receive Date: 20250313
  Receipt Date: 20250313
  Transmission Date: 20250408
  Serious: Yes (Hospitalization)
  Sender: FDA-CTU
  Company Number: None

PATIENT
  Age: 42 Year
  Sex: Male
  Weight: 122.52 kg

DRUGS (12)
  1. ENVARSUS XR [Suspect]
     Active Substance: TACROLIMUS
     Indication: Prophylaxis against transplant rejection
     Dosage: FREQUENCY : DAILY;?
     Route: 048
  2. LOSARTAN [Concomitant]
     Active Substance: LOSARTAN
  3. calcium cit/vit d3 [Concomitant]
  4. VITAMINS [Concomitant]
     Active Substance: VITAMINS
  5. CARVEDILOL [Concomitant]
     Active Substance: CARVEDILOL
  6. HYDRALAZINE [Concomitant]
     Active Substance: HYDRALAZINE HYDROCHLORIDE
  7. ASPIRIN [Concomitant]
     Active Substance: ASPIRIN
  8. PRAVASTATIN [Concomitant]
     Active Substance: PRAVASTATIN
  9. TORSEMIDE [Concomitant]
     Active Substance: TORSEMIDE
  10. MAGNESIUM OXIDE [Concomitant]
     Active Substance: MAGNESIUM OXIDE
  11. VITAMIN E [Concomitant]
     Active Substance: .ALPHA.-TOCOPHEROL
  12. MYCOPHENOLIC ACID [Suspect]
     Active Substance: MYCOPHENOLIC ACID
     Indication: Prophylaxis against transplant rejection
     Dosage: FREQUENCY : TWICE A DAY;?
     Route: 048

REACTIONS (1)
  - Heart transplant rejection [None]

NARRATIVE: CASE EVENT DATE: 20250307
